FAERS Safety Report 9302604 (Version 4)
Quarter: 2014Q1

REPORT INFORMATION
  Report Type: Report from Study
  Country: IT (occurrence: IT)
  Receive Date: 20130522
  Receipt Date: 20140326
  Transmission Date: 20141002
  Serious: Yes (Other)
  Sender: FDA-Public Use
  Company Number: IT-PFIZER INC-2013156801

PATIENT
  Age: 45 Year
  Sex: Female
  Weight: 53.2 kg

DRUGS (3)
  1. BOSUTINIB [Suspect]
     Indication: CHRONIC MYELOID LEUKAEMIA
     Dosage: 500 MG, DAILY
     Route: 048
     Dates: start: 20111109
  2. KCL-RETARD [Concomitant]
     Indication: PROPHYLAXIS
     Dosage: 600 MG, 1X/DAY
     Route: 048
     Dates: start: 20130213
  3. NEPAFENAC [Concomitant]
     Indication: PROPHYLAXIS
     Dosage: 2 GTT, DAILY
     Route: 061
     Dates: start: 20120725

REACTIONS (1)
  - Vitreous haemorrhage [Recovering/Resolving]
